FAERS Safety Report 8322831-8 (Version None)
Quarter: 2012Q2

REPORT INFORMATION
  Report Type: 
  Country: None (occurrence: None)
  Receive Date: 20120430
  Receipt Date: 20120423
  Transmission Date: 20120825
  Serious: Yes (Hospitalization)
  Sender: FDA-Public Use
  Company Number: PHHY2012JP033521

PATIENT
  Age: 61 Year
  Sex: Male

DRUGS (3)
  1. INFLUENZA VIRUS VACCINE - PANDEMIC INN [Suspect]
     Indication: IMMUNISATION
     Dosage: 1 DF
     Dates: start: 20091101, end: 20091101
  2. CARBOPLATIN [Suspect]
     Indication: LUNG NEOPLASM MALIGNANT
     Dosage: FOUR COURSES
     Dates: end: 20090701
  3. PACLITAXEL [Suspect]
     Indication: LUNG NEOPLASM MALIGNANT
     Dosage: FOUR COURSES
     Dates: end: 20090701

REACTIONS (8)
  - PULMONARY FIBROSIS [None]
  - LYMPHOCYTIC INFILTRATION [None]
  - COUGH [None]
  - PYREXIA [None]
  - HYPOXIA [None]
  - DYSPNOEA [None]
  - PULMONARY TOXICITY [None]
  - BLOOD LACTATE DEHYDROGENASE INCREASED [None]
